FAERS Safety Report 15752181 (Version 2)
Quarter: 2018Q4

REPORT INFORMATION
  Report Type: Spontaneous
  Country: CA (occurrence: CA)
  Receive Date: 20181221
  Receipt Date: 20181227
  Transmission Date: 20190205
  Serious: Yes (Other)
  Sender: FDA-Public Use
  Company Number: CA-JNJFOC-20181216739

PATIENT
  Sex: Female

DRUGS (2)
  1. REMICADE [Suspect]
     Active Substance: INFLIXIMAB
     Indication: COLITIS ULCERATIVE
     Route: 042
  2. REMICADE [Suspect]
     Active Substance: INFLIXIMAB
     Indication: COLITIS ULCERATIVE
     Route: 042

REACTIONS (12)
  - Dry skin [Not Recovered/Not Resolved]
  - Drug level below therapeutic [Unknown]
  - Drug ineffective [Unknown]
  - Product use issue [Unknown]
  - Hypersensitivity [Unknown]
  - Postoperative wound infection [Unknown]
  - Alopecia [Unknown]
  - Arthritis [Unknown]
  - Exposure during pregnancy [Recovered/Resolved]
  - Off label use [Unknown]
  - Colitis ulcerative [Not Recovered/Not Resolved]
  - Caesarean section [Unknown]

NARRATIVE: CASE EVENT DATE: 2018
